FAERS Safety Report 6756178-8 (Version None)
Quarter: 2010Q2

REPORT INFORMATION
  Report Type: 
  Country: None (occurrence: None)
  Receive Date: 20100604
  Receipt Date: 20100524
  Transmission Date: 20101027
  Serious: Yes (Hospitalization, Other)
  Sender: FDA-Public Use
  Company Number: PHHY2010US30518

PATIENT
  Sex: Female
  Weight: 92 kg

DRUGS (4)
  1. FEMARA [Suspect]
     Indication: BREAST CANCER METASTATIC
     Dosage: 2.5 MG, QD
     Route: 048
     Dates: start: 20010130
  2. ATENOLOL [Concomitant]
     Indication: HYPERTENSION
     Dosage: 25 MG, QD
     Route: 048
  3. SYNTHROID [Concomitant]
     Dosage: 75 MG, UNK
     Route: 048
  4. MEVACOR [Concomitant]

REACTIONS (1)
  - KNEE ARTHROPLASTY [None]
